FAERS Safety Report 13973438 (Version 1)
Quarter: 2017Q3

REPORT INFORMATION
  Report Type: Spontaneous
  Country: US (occurrence: US)
  Receive Date: 20170915
  Receipt Date: 20170915
  Transmission Date: 20171128
  Serious: Yes (Death, Life-Threatening, Hospitalization, Disabling)
  Sender: FDA-Public Use
  Company Number: None

PATIENT
  Age: 76 Year
  Sex: Female
  Weight: 67.5 kg

DRUGS (9)
  1. FENFIBRATE [Concomitant]
  2. CARVEDILOL. [Concomitant]
     Active Substance: CARVEDILOL
  3. ANUVIA [Concomitant]
  4. FEROSEMIDE [Concomitant]
  5. TRAMADOL. [Concomitant]
     Active Substance: TRAMADOL
  6. XARELTO [Suspect]
     Active Substance: RIVAROXABAN
     Indication: THROMBOSIS
     Dosage: ?          QUANTITY:1 TABLET(S);?
     Route: 048
     Dates: start: 20170821, end: 20170904
  7. INSULIN [Concomitant]
     Active Substance: INSULIN NOS
  8. JANUVIA [Concomitant]
     Active Substance: SITAGLIPTIN PHOSPHATE
  9. LEVOTHYROXMINE [Concomitant]

REACTIONS (11)
  - Photosensitivity reaction [None]
  - Sepsis [None]
  - Renal failure [None]
  - Internal haemorrhage [None]
  - Upper gastrointestinal haemorrhage [None]
  - Pneumonia [None]
  - Dyspnoea [None]
  - Headache [None]
  - Asthenia [None]
  - Haematochezia [None]
  - Cerebrovascular accident [None]

NARRATIVE: CASE EVENT DATE: 20170905
